FAERS Safety Report 22188085 (Version 2)
Quarter: 2023Q2

REPORT INFORMATION
  Report Type: Report from Study
  Country: BR (occurrence: BR)
  Receive Date: 20230408
  Receipt Date: 20230421
  Transmission Date: 20230721
  Serious: Yes (Other)
  Sender: FDA-Public Use
  Company Number: BR-002147023-NVSC2023BR079618

PATIENT
  Sex: Female

DRUGS (3)
  1. DIOVAN HCT [Suspect]
     Active Substance: HYDROCHLOROTHIAZIDE\VALSARTAN
     Indication: Product used for unknown indication
     Dosage: UNK UNK, BIW (80 MG/ 12 AND HALF)
     Route: 065
  2. METFORMIN HYDROCHLORIDE\VILDAGLIPTIN [Suspect]
     Active Substance: METFORMIN HYDROCHLORIDE\VILDAGLIPTIN
     Indication: Product used for unknown indication
     Dosage: UNK (50 PLUS 850 MG)
     Route: 065
  3. OLANZAPINE [Concomitant]
     Active Substance: OLANZAPINE
     Indication: Product used for unknown indication
     Dosage: UNK
     Route: 065

REACTIONS (12)
  - Parkinson^s disease [Unknown]
  - Mental disorder [Unknown]
  - Concomitant disease aggravated [Unknown]
  - Blood uric acid increased [Unknown]
  - Dysphagia [Unknown]
  - Malaise [Unknown]
  - Drug intolerance [Unknown]
  - Adverse drug reaction [Unknown]
  - Visual impairment [Unknown]
  - Depression [Unknown]
  - Somatic symptom disorder [Unknown]
  - Product size issue [Unknown]

NARRATIVE: CASE EVENT DATE: 20140101
